FAERS Safety Report 4675332-2 (Version None)
Quarter: 2005Q2

REPORT INFORMATION
  Report Type: 
  Country: None (occurrence: None)
  Receive Date: 20050525
  Receipt Date: 20050516
  Transmission Date: 20051028
  Serious: Yes (Other)
  Sender: FDA-Public Use
  Company Number: 2005-05-0952

PATIENT
  Sex: Male

DRUGS (1)
  1. AERIUS (DESLORATADINE) TABLETS   ^LIKE CLARINEX^ [Suspect]
     Indication: HYPERSENSITIVITY
     Dosage: 1 TAB QD ORAL
     Route: 048
     Dates: start: 20050512

REACTIONS (1)
  - HEART RATE DECREASED [None]
